FAERS Safety Report 5683747-9 (Version None)
Quarter: 2008Q1

REPORT INFORMATION
  Report Type: 
  Country: None (occurrence: None)
  Receive Date: 20080328
  Receipt Date: 20061107
  Transmission Date: 20080703
  Serious: No
  Sender: FDA-Public Use
  Company Number: US-BAYER-US-2006-028722

PATIENT
  Age: 35 Year
  Sex: Female
  Weight: 58 kg

DRUGS (4)
  1. MIRENA [Suspect]
     Indication: CONTRACEPTION
     Route: 015
     Dates: start: 20060101, end: 20061009
  2. LIPITOR [Concomitant]
     Dosage: UNIT DOSE: 15 MG
     Route: 048
  3. SYNTHROID [Concomitant]
  4. ZYRTEC [Concomitant]

REACTIONS (4)
  - ABDOMINAL PAIN [None]
  - METRORRHAGIA [None]
  - POLYMENORRHAGIA [None]
  - PROCEDURAL PAIN [None]
